FAERS Safety Report 8552835-1 (Version None)
Quarter: 2012Q2

REPORT INFORMATION
  Report Type: 
  Country: None (occurrence: None)
  Receive Date: 20120416
  Receipt Date: 20091222
  Transmission Date: 20120825
  Serious: Yes (Other)
  Sender: FDA-Public Use
  Company Number: PHHY2009US57708

PATIENT
  Age: 76 Year
  Sex: Male

DRUGS (5)
  1. HYTRIN [Concomitant]
  2. EXELON [Suspect]
     Dosage: 9.5 MG, TRANSDERMAL
     Route: 062
  3. SIMVASTATIN [Concomitant]
  4. SINEMET [Concomitant]
  5. CELEXA [Concomitant]

REACTIONS (4)
  - HALLUCINATION [None]
  - FATIGUE [None]
  - ABNORMAL DREAMS [None]
  - FEELING ABNORMAL [None]
